FAERS Safety Report 25887145 (Version 1)
Quarter: 2025Q4

REPORT INFORMATION
  Report Type: Spontaneous
  Country: US (occurrence: US)
  Receive Date: 20251006
  Receipt Date: 20251006
  Transmission Date: 20260118
  Serious: Yes (Other)
  Sender: MERCK SHARP & DOHME LLC
  Company Number: US-009507513-2335511

PATIENT

DRUGS (1)
  1. ERTAPENEM [Suspect]
     Active Substance: ERTAPENEM
     Indication: Bacterial infection
     Dosage: } 1 G, EVERY 24 HOURS

REACTIONS (2)
  - Neutropenia [Unknown]
  - Incorrect dose administered [Unknown]
